FAERS Safety Report 10627907 (Version 1)
Quarter: 2014Q4

REPORT INFORMATION
  Report Type: Spontaneous
  Country: US (occurrence: US)
  Receive Date: 20141205
  Receipt Date: 20141205
  Transmission Date: 20150529
  Serious: No
  Sender: FDA-Public Use
  Company Number: US-BRISTOL-MYERS SQUIBB COMPANY-21469366

PATIENT
  Age: 26 Year
  Sex: Female

DRUGS (1)
  1. ERBITUX [Suspect]
     Active Substance: CETUXIMAB
     Indication: COLON CANCER
     Route: 042
     Dates: start: 20140926

REACTIONS (2)
  - Dry skin [Unknown]
  - Rash [Unknown]

NARRATIVE: CASE EVENT DATE: 20140929
